FAERS Safety Report 24334994 (Version 5)
Quarter: 2024Q4

REPORT INFORMATION
  Report Type: Spontaneous
  Country: CR (occurrence: CR)
  Receive Date: 20240918
  Receipt Date: 20241226
  Transmission Date: 20250114
  Serious: No
  Sender: PFIZER
  Company Number: CR-PFIZER INC-202400236605

PATIENT
  Age: 9 Year
  Sex: Female

DRUGS (2)
  1. GENOTROPIN [Suspect]
     Active Substance: SOMATROPIN
     Indication: Growth hormone deficiency
     Dosage: 0.7 MG  EVERY 24 HOURS
     Route: 048
     Dates: start: 20240321
  2. GENOTROPIN [Suspect]
     Active Substance: SOMATROPIN
     Dosage: 0.8 MG, DAILY

REACTIONS (6)
  - Off label use [Unknown]
  - Product prescribing error [Unknown]
  - Device information output issue [Unknown]
  - Device leakage [Unknown]
  - Wrong technique in device usage process [Unknown]
  - Device delivery system issue [Unknown]
